FAERS Safety Report 5447684-7 (Version None)
Quarter: 2007Q3

REPORT INFORMATION
  Report Type: 
  Country: None (occurrence: None)
  Receive Date: 20070910
  Receipt Date: 20070831
  Transmission Date: 20080115
  Serious: Yes (Death, Hospitalization, Disabling)
  Sender: FDA-Public Use
  Company Number: JP-MERCK-0508USA01589

PATIENT
  Age: 69 Year
  Sex: Female
  Weight: 50 kg

DRUGS (16)
  1. PRIMAXIN [Suspect]
     Indication: INFECTION
     Route: 042
     Dates: start: 20041217, end: 20041221
  2. PRIMAXIN [Suspect]
     Route: 042
     Dates: start: 20041116, end: 20041122
  3. PRIMAXIN [Suspect]
     Indication: PANCYTOPENIA
     Route: 042
     Dates: start: 20041217, end: 20041221
  4. PRIMAXIN [Suspect]
     Route: 042
     Dates: start: 20041116, end: 20041122
  5. AREDIA [Suspect]
     Indication: HYPERCALCAEMIA
     Route: 042
     Dates: start: 20041122, end: 20041209
  6. AREDIA [Suspect]
     Indication: PANCYTOPENIA
     Route: 042
     Dates: start: 20041122, end: 20041209
  7. VOLTAREN [Suspect]
     Route: 054
  8. PENTCILLIN [Suspect]
     Indication: INFECTION
     Route: 051
     Dates: start: 20041115, end: 20041116
  9. PENTCILLIN [Suspect]
     Route: 051
     Dates: start: 20041201, end: 20041207
  10. TOBRACIN [Suspect]
     Indication: INFECTION
     Route: 051
     Dates: start: 20041115, end: 20041116
  11. TOBRACIN [Suspect]
     Route: 051
     Dates: start: 20041201, end: 20041207
  12. TOBRACIN [Suspect]
     Indication: PANCYTOPENIA
     Route: 051
     Dates: start: 20041115, end: 20041116
  13. TOBRACIN [Suspect]
     Route: 051
     Dates: start: 20041201, end: 20041207
  14. GRAN [Suspect]
     Indication: WHITE BLOOD CELL COUNT DECREASED
     Route: 051
     Dates: start: 20041116, end: 20041122
  15. IMMUNE GLOBULIN INTRAVENOUS (HUMAN) [Suspect]
     Indication: INFECTION
     Route: 042
     Dates: start: 20041116, end: 20041118
  16. IMMUNE GLOBULIN INTRAVENOUS (HUMAN) [Suspect]
     Indication: PANCYTOPENIA
     Route: 042
     Dates: start: 20041116, end: 20041118

REACTIONS (4)
  - CARDIAC FAILURE [None]
  - DEPRESSED LEVEL OF CONSCIOUSNESS [None]
  - LEUKOENCEPHALOPATHY [None]
  - PULMONARY CONGESTION [None]
